FAERS Safety Report 8495386-5 (Version None)
Quarter: 2012Q2

REPORT INFORMATION
  Report Type: 
  Country: None (occurrence: None)
  Receive Date: 20120628
  Receipt Date: 20120430
  Transmission Date: 20120825
  Serious: No
  Sender: FDA-Public Use
  Company Number: 12-0003

PATIENT
  Age: 60 Year
  Sex: Male
  Weight: 90.7194 kg

DRUGS (2)
  1. PREMIER VALUE ULTRA-FINE NASAL SPRAY. [Suspect]
     Indication: NASAL CONGESTION
     Dosage: ADULTS - 2-3 SPRAYS
     Dates: start: 20120428, end: 20120428
  2. OXYMETAZOLINE HCL [Suspect]
     Dosage: IN EACH NOSTRIL

REACTIONS (3)
  - SINUS HEADACHE [None]
  - BLOOD PRESSURE INCREASED [None]
  - RHINALGIA [None]
